FAERS Safety Report 7413755-9 (Version None)
Quarter: 2011Q2

REPORT INFORMATION
  Report Type: 
  Country: None (occurrence: None)
  Receive Date: 20110413
  Receipt Date: 20110404
  Transmission Date: 20111010
  Serious: Yes (Hospitalization)
  Sender: FDA-Public Use
  Company Number: A0912569A

PATIENT
  Sex: Female
  Weight: 60 kg

DRUGS (3)
  1. OFATUMUMAB [Suspect]
     Dosage: 300MG CYCLIC
     Route: 042
     Dates: start: 20110207
  2. COTRIM [Concomitant]
     Dosage: 480MG THREE TIMES PER WEEK
     Route: 048
  3. ACICLOVIR [Concomitant]
     Indication: ANTIVIRAL PROPHYLAXIS
     Dosage: 400MG TWICE PER DAY
     Route: 048

REACTIONS (2)
  - HYPOAESTHESIA ORAL [None]
  - DIZZINESS [None]
